FAERS Safety Report 6914903-7 (Version None)
Quarter: 2010Q3

REPORT INFORMATION
  Report Type: 
  Country: None (occurrence: None)
  Receive Date: 20100809
  Receipt Date: 20100728
  Transmission Date: 20110219
  Serious: Yes (Hospitalization)
  Sender: FDA-Public Use
  Company Number: PHHY2010EC49729

PATIENT
  Age: 81 Year
  Sex: Female

DRUGS (3)
  1. DIOVAN [Suspect]
     Indication: HYPERTENSION
     Dosage: 1 DF, QD
     Route: 048
     Dates: start: 20071201
  2. DORZOLAMIDE HCL AND TIMOLOL MALEATE [Concomitant]
     Indication: GLAUCOMA
     Dosage: UNK
  3. TRAVATAN [Concomitant]
     Indication: GLAUCOMA

REACTIONS (6)
  - BLOOD PRESSURE INADEQUATELY CONTROLLED [None]
  - CEREBROVASCULAR ACCIDENT [None]
  - COMA [None]
  - DIZZINESS [None]
  - LUNG DISORDER [None]
  - RENAL DISORDER [None]
